FAERS Safety Report 9856855 (Version 2)
Quarter: 2014Q2

REPORT INFORMATION
  Report Type: Spontaneous
  Country: US (occurrence: US)
  Receive Date: 20140130
  Receipt Date: 20140408
  Transmission Date: 20141212
  Serious: Yes (Death)
  Sender: FDA-Public Use
  Company Number: US-CELGENEUS-163-POMAL-14014763

PATIENT
  Age: 68 Year
  Sex: Female

DRUGS (3)
  1. POMALYST [Suspect]
     Indication: PLASMA CELL MYELOMA
     Dosage: 4 MILLIGRAM
     Route: 048
     Dates: start: 20130515, end: 20130531
  2. CARFILZOMIB [Concomitant]
     Indication: PLASMA CELL MYELOMA
     Route: 041
     Dates: start: 20130515, end: 20130531
  3. DECADRON [Concomitant]
     Indication: PRODUCT USED FOR UNKNOWN INDICATION
     Dosage: 16 MILLIGRAM
     Route: 048
     Dates: start: 20130515, end: 20130531

REACTIONS (1)
  - Plasma cell myeloma [Fatal]
